FAERS Safety Report 20133461 (Version 1)
Quarter: 2021Q4

REPORT INFORMATION
  Report Type: Spontaneous
  Country: CN (occurrence: None)
  Receive Date: 20211201
  Receipt Date: 20211201
  Transmission Date: 20220303
  Serious: Yes (Other)
  Sender: FDA-Public Use
  Company Number: CN-ROCHE-2963329

PATIENT
  Age: 69 Year
  Sex: Male
  Weight: 50 kg

DRUGS (5)
  1. TECENTRIQ [Suspect]
     Active Substance: ATEZOLIZUMAB
     Indication: Hepatocellular carcinoma
     Route: 065
     Dates: start: 20210605
  2. AVASTIN [Suspect]
     Active Substance: BEVACIZUMAB
     Indication: Hepatocellular carcinoma
     Route: 065
     Dates: start: 20210605
  3. FUROSEMIDE [Concomitant]
     Active Substance: FUROSEMIDE
     Indication: Polyuria
  4. SPIRONOLACTONE [Concomitant]
     Active Substance: SPIRONOLACTONE
  5. ILAPRAZOLE [Concomitant]
     Active Substance: ILAPRAZOLE

REACTIONS (7)
  - Blood thyroid stimulating hormone increased [Unknown]
  - Hypothyroidism [Unknown]
  - Blood pressure increased [Unknown]
  - Varices oesophageal [Unknown]
  - Gastritis erosive [Unknown]
  - Duodenogastric reflux [Unknown]
  - Gastric disorder [Unknown]

NARRATIVE: CASE EVENT DATE: 20210716
